FAERS Safety Report 17845248 (Version 2)
Quarter: 2020Q2

REPORT INFORMATION
  Report Type: Spontaneous
  Country: JP (occurrence: JP)
  Receive Date: 20200601
  Receipt Date: 20200629
  Transmission Date: 20200714
  Serious: Yes (Death, Other)
  Sender: FDA-Public Use
  Company Number: NVSJ2020JP005384

PATIENT
  Sex: Male

DRUGS (2)
  1. TOCILIZUMAB. [Concomitant]
     Active Substance: TOCILIZUMAB
     Indication: STILL^S DISEASE
     Dosage: UNK
     Route: 065
  2. CYCLOSPORINE. [Suspect]
     Active Substance: CYCLOSPORINE
     Indication: STILL^S DISEASE
     Dosage: UNK
     Route: 065

REACTIONS (7)
  - Shock haemorrhagic [Fatal]
  - Disseminated intravascular coagulation [Unknown]
  - Gastrointestinal haemorrhage [Fatal]
  - Haemophagocytic lymphohistiocytosis [Unknown]
  - Disease progression [Unknown]
  - Still^s disease [Unknown]
  - Product use in unapproved indication [Unknown]
